FAERS Safety Report 10201633 (Version 1)
Quarter: 2014Q2

REPORT INFORMATION
  Report Type: Report from Study
  Country: TN (occurrence: TN)
  Receive Date: 20140528
  Receipt Date: 20140528
  Transmission Date: 20141212
  Serious: Yes (Death)
  Sender: FDA-Public Use
  Company Number: TN-SA-2014SA063398

PATIENT
  Age: 84 Year
  Sex: Male

DRUGS (4)
  1. PLAVIX [Suspect]
     Indication: ISCHAEMIC STROKE
     Dosage: DOSE-75/DAY
     Route: 048
     Dates: start: 20140125, end: 20140430
  2. TORENTAL [Concomitant]
     Route: 048
     Dates: end: 20140430
  3. ZOVATIN [Concomitant]
     Route: 048
     Dates: end: 20140430
  4. MOPRAL [Concomitant]
     Route: 048
     Dates: end: 20140430

REACTIONS (1)
  - Failure to thrive [Fatal]
